FAERS Safety Report 9033399 (Version 1)
Quarter: 2013Q1

REPORT INFORMATION
  Report Type: Spontaneous
  Country: US (occurrence: US)
  Receive Date: 20130128
  Receipt Date: 20130128
  Transmission Date: 20140127
  Serious: Yes (Other)
  Sender: FDA-Public Use
  Company Number: CHPA2013US001578

PATIENT
  Age: 67 Year
  Sex: Female

DRUGS (3)
  1. DESENEX PRESCRIPTIONSTRENGTH ANTIFPOWDER [Suspect]
     Indication: PROPHYLAXIS
     Dosage: UNK, UNK
     Route: 061
     Dates: start: 2009
  2. PRINIVIL [Concomitant]
     Indication: HYPERTENSION
     Dosage: UNK, UNK
     Route: 048
  3. SAGE [Concomitant]
     Dosage: UNK, UNK

REACTIONS (7)
  - Gastrointestinal perforation [Recovered/Resolved]
  - Erythema [Not Recovered/Not Resolved]
  - Cold sweat [Not Recovered/Not Resolved]
  - Skin odour abnormal [Not Recovered/Not Resolved]
  - Skin irritation [Recovered/Resolved]
  - Off label use [Unknown]
  - Incorrect drug administration duration [Unknown]
